FAERS Safety Report 7394514-2 (Version None)
Quarter: 2011Q2

REPORT INFORMATION
  Report Type: 
  Country: None (occurrence: None)
  Receive Date: 20110405
  Receipt Date: 20110328
  Transmission Date: 20111010
  Serious: Yes (Other)
  Sender: FDA-Public Use
  Company Number: US-AMGEN-USASP2011008465

PATIENT
  Age: 57 Year
  Sex: Female

DRUGS (1)
  1. ENBREL [Suspect]
     Indication: RHEUMATOID ARTHRITIS
     Dosage: 50 MG, QWK
     Dates: start: 20090401

REACTIONS (5)
  - EAR HAEMORRHAGE [None]
  - EYELID DISORDER [None]
  - VIITH NERVE PARALYSIS [None]
  - INJECTION SITE REACTION [None]
  - EAR INFECTION [None]
